FAERS Safety Report 5964962-3 (Version None)
Quarter: 2008Q4

REPORT INFORMATION
  Report Type: 
  Country: None (occurrence: None)
  Receive Date: 20081124
  Receipt Date: 20081124
  Transmission Date: 20090506
  Serious: Yes (Hospitalization)
  Sender: FDA-Public Use
  Company Number: None

PATIENT
  Age: 56 Year
  Sex: Female
  Weight: 65.7716 kg

DRUGS (2)
  1. RETIN-A MICRO [Suspect]
     Indication: EPHELIDES
     Dosage: USE SMALL AMOUNT TO FACE 3-5 TIMES/WEEK TOP
     Route: 061
     Dates: start: 19920610, end: 20071123
  2. RETIN-A MICRO [Suspect]
     Indication: SKIN WRINKLING
     Dosage: USE SMALL AMOUNT TO FACE 3-5 TIMES/WEEK TOP
     Route: 061
     Dates: start: 19920610, end: 20071123

REACTIONS (2)
  - LYMPHOMA [None]
  - STEM CELL TRANSPLANT [None]
